FAERS Safety Report 19992196 (Version 1)
Quarter: 2021Q4

REPORT INFORMATION
  Report Type: Spontaneous
  Country: US (occurrence: US)
  Receive Date: 20211026
  Receipt Date: 20211026
  Transmission Date: 20220304
  Serious: No
  Sender: FDA-Public Use
  Company Number: US-BRACCO-2021US04128

PATIENT
  Sex: Female

DRUGS (1)
  1. READI-CAT 2 [Suspect]
     Active Substance: BARIUM SULFATE
     Indication: Computerised tomogram
     Dosage: UNK, SINGLE
     Route: 048
     Dates: start: 20210923, end: 20210923

REACTIONS (2)
  - Constipation [Recovered/Resolved]
  - Rash erythematous [Recovering/Resolving]

NARRATIVE: CASE EVENT DATE: 20210923
